FAERS Safety Report 10907729 (Version 4)
Quarter: 2015Q2

REPORT INFORMATION
  Report Type: Spontaneous
  Country: JP (occurrence: None)
  Receive Date: 20150309
  Receipt Date: 20150504
  Transmission Date: 20150821
  Serious: Yes (Hospitalization, Other)
  Sender: FDA-Public Use
  Company Number: ADR-2015-00473

PATIENT
  Age: 57 Year
  Sex: Male
  Weight: 60 kg

DRUGS (1)
  1. GABALON [Suspect]
     Active Substance: BACLOFEN
     Indication: CEREBRAL PALSY
     Dosage: 50MCG/DAY (SEE B5)?
     Dates: start: 20130322

REACTIONS (4)
  - Blood creatine phosphokinase increased [None]
  - Hyperthermia [None]
  - Heat stroke [None]
  - Loss of consciousness [None]
